FAERS Safety Report 20816726 (Version 1)
Quarter: 2022Q2

REPORT INFORMATION
  Report Type: Spontaneous
  Country: IN (occurrence: IN)
  Receive Date: 20220512
  Receipt Date: 20220512
  Transmission Date: 20220721
  Serious: Yes (Death, Hospitalization, Other)
  Sender: FDA-Public Use
  Company Number: IN-NOVITIUMPHARMA-2022INNVP00068

PATIENT
  Age: 27 Year
  Sex: Female

DRUGS (1)
  1. DAPSONE [Suspect]
     Active Substance: DAPSONE
     Indication: Acne

REACTIONS (5)
  - Necrotising fasciitis [Fatal]
  - Urosepsis [Fatal]
  - Gastroenteritis [Fatal]
  - Febrile neutropenia [Fatal]
  - Herbal interaction [Fatal]
